FAERS Safety Report 8181420-9 (Version None)
Quarter: 2012Q1

REPORT INFORMATION
  Report Type: 
  Country: None (occurrence: None)
  Receive Date: 20120302
  Receipt Date: 20120223
  Transmission Date: 20120608
  Serious: Yes (Other)
  Sender: FDA-Public Use
  Company Number: US-FRI-1000027356

PATIENT
  Age: 51 Year
  Sex: Female

DRUGS (6)
  1. NORCO [Concomitant]
     Indication: BACK PAIN
  2. LEXAPRO [Suspect]
     Indication: DEPRESSION
     Dosage: 20 MG
     Route: 048
     Dates: start: 20100101, end: 20120119
  3. FENTANYL [Concomitant]
     Indication: BACK PAIN
  4. SOMA [Concomitant]
     Indication: BACK PAIN
  5. GABAPENTIN [Concomitant]
  6. TRAZODONE HCL [Concomitant]
     Indication: INSOMNIA

REACTIONS (4)
  - MIGRAINE [None]
  - DYSPNOEA [None]
  - HEART RATE INCREASED [None]
  - PALPITATIONS [None]
